FAERS Safety Report 8909445 (Version 1)
Quarter: 2012Q4

REPORT INFORMATION
  Report Type: 
  Country: US (occurrence: US)
  Receive Date: 20121115
  Receipt Date: 20121115
  Transmission Date: 20130627
  Serious: No
  Sender: FDA-Public Use
  Company Number: US-B.I. PHARMACEUTICALS,INC./RIDGEFIELD-2012-BI-00356BP

PATIENT
  Age: 73 Year
  Sex: Female

DRUGS (5)
  1. SPIRIVA [Suspect]
     Indication: CHRONIC OBSTRUCTIVE PULMONARY DISEASE
     Dosage: 18 mcg
     Route: 055
  2. BROVANA [Concomitant]
  3. BUDESONIDE [Concomitant]
  4. ALBUTEROL [Concomitant]
  5. OXYGEN [Concomitant]

REACTIONS (2)
  - Dyspnoea [Unknown]
  - Wheezing [Unknown]
